FAERS Safety Report 23945185 (Version 1)
Quarter: 2024Q2

REPORT INFORMATION
  Report Type: Spontaneous
  Country: GB (occurrence: GB)
  Receive Date: 20240606
  Receipt Date: 20240606
  Transmission Date: 20240716
  Serious: Yes (Disabling)
  Sender: FDA-Public Use
  Company Number: GB-MHRA-TPP28536251C7323768YC1717498098024

PATIENT
  Age: 68 Year
  Sex: Female
  Weight: 46 kg

DRUGS (15)
  1. SPIRIVA RESPIMAT [Suspect]
     Active Substance: TIOTROPIUM BROMIDE
     Indication: Chronic obstructive pulmonary disease
     Dosage: FOA-TPP YC - PLEASE RECLASSIFY
     Dates: start: 20240604
  2. SPIRIVA RESPIMAT [Suspect]
     Active Substance: TIOTROPIUM BROMIDE
     Indication: Asthma
  3. AMOXICILLIN [Concomitant]
     Active Substance: AMOXICILLIN
     Indication: Ill-defined disorder
     Dosage: FOR 5 DAYS?FOA-TPP YC - PLEASE RECLASSIFY
     Dates: start: 20240311, end: 20240316
  4. PREDNISOLONE [Concomitant]
     Active Substance: PREDNISOLONE
     Indication: Ill-defined disorder
     Dosage: 8 DAILY WITH FOOD ALL AT SAME TIME?FOA-TPP YC - PLEASE RECLASSIFY
     Dates: start: 20240320
  5. DOXYCYCLINE [Concomitant]
     Active Substance: DOXYCYCLINE\DOXYCYCLINE HYCLATE
     Indication: Ill-defined disorder
     Dosage: TWO NOW THEN ONE, DAILY?FOA-TPP YC - PLEASE RECLASSIFY
     Dates: start: 20240320
  6. CARBOCYSTEINE [Concomitant]
     Active Substance: CARBOCYSTEINE
     Indication: Ill-defined disorder
     Dosage: 2 CAPSULES TO BE TAKEN TWICE DAILY?FOA-TPP YC - PLEASE RECLASSIFY
     Dates: start: 20240524
  7. APIXABAN [Concomitant]
     Active Substance: APIXABAN
     Indication: Ill-defined disorder
     Dosage: FOA-TPP YC - PLEASE RECLASSIFY
     Dates: start: 20230806
  8. ATORVASTATIN [Concomitant]
     Active Substance: ATORVASTATIN
     Indication: Ill-defined disorder
     Dosage: TAKE ONE ON?FOA-TPP YC - PLEASE RECLASSIFY
     Dates: start: 20230806
  9. BISOPROLOL [Concomitant]
     Active Substance: BISOPROLOL\BISOPROLOL FUMARATE
     Indication: Ill-defined disorder
     Dosage: FOA-TPP YC - PLEASE RECLASSIFY
     Dates: start: 20230806
  10. COCODAMOL [Concomitant]
     Active Substance: ACETAMINOPHEN\CODEINE PHOSPHATE
     Indication: Ill-defined disorder
     Dosage: TAKE 1 OR 2,
     Dates: start: 20230806
  11. FLUTICASONE FUROATE [Concomitant]
     Active Substance: FLUTICASONE FUROATE
     Indication: Ill-defined disorder
     Dosage: SPRAY ONE TO TWO DOSES INTO EACH NOSTRIL ?FOA-TPP YC - PLEASE RECLASSIFY
     Dates: start: 20230806
  12. BECLOMETHASONE\FORMOTEROL [Concomitant]
     Active Substance: BECLOMETHASONE\FORMOTEROL
     Indication: Ill-defined disorder
     Dosage: TWO PUFFS ?FOA-TPP YC - PLEASE RECLASSIFY
     Dates: start: 20230806
  13. NITROGLYCERIN [Concomitant]
     Active Substance: NITROGLYCERIN
     Indication: Ill-defined disorder
     Dosage: ONE SPRAY UNDER TONGUE FOR CHEST PAIN, WAIT 5 M...?FOA-TPP YC - PLEASE RECLASSIFY
     Dates: start: 20230806
  14. RAMIPRIL [Concomitant]
     Active Substance: RAMIPRIL
     Indication: Ill-defined disorder
     Dosage: FOA-TPP YC - PLEASE RECLASSIFY
     Dates: start: 20230806
  15. ALBUTEROL [Concomitant]
     Active Substance: ALBUTEROL
     Indication: Ill-defined disorder
     Dosage: 2 PUFFS
     Dates: start: 20230806

REACTIONS (1)
  - Dyspnoea [Recovered/Resolved]

NARRATIVE: CASE EVENT DATE: 20240604
